FAERS Safety Report 13732946 (Version 2)
Quarter: 2017Q3

REPORT INFORMATION
  Report Type: Spontaneous
  Country: US (occurrence: US)
  Receive Date: 20170707
  Receipt Date: 20170710
  Transmission Date: 20171127
  Serious: Yes (Death, Life-Threatening)
  Sender: FDA-Public Use
  Company Number: US-FRESENIUS KABI-FK201705838

PATIENT
  Age: 58 Year
  Sex: Female

DRUGS (2)
  1. DIPYRIDAMOLE (MANUFACTURER UNKNOWN) [Suspect]
     Active Substance: DIPYRIDAMOLE
     Indication: CARDIAC STRESS TEST
     Route: 042
  2. AMINOPHYLLINE. [Concomitant]
     Active Substance: AMINOPHYLLINE
     Indication: PROPHYLAXIS
     Route: 042

REACTIONS (2)
  - Ventricular tachycardia [Not Recovered/Not Resolved]
  - Pulseless electrical activity [Fatal]
